FAERS Safety Report 4314287-7 (Version None)
Quarter: 2004Q1

REPORT INFORMATION
  Report Type: 
  Country: None (occurrence: None)
  Receive Date: 20040309
  Receipt Date: 20040301
  Transmission Date: 20041129
  Serious: Yes (Other)
  Sender: FDA-Public Use
  Company Number: PHEH2004US02519

PATIENT
  Sex: Male

DRUGS (2)
  1. TRILEPTAL [Suspect]
     Dosage: 150 MG, QD
     Route: 048
  2. TRILEPTAL [Suspect]
     Dosage: 600 MG, BID
     Route: 048

REACTIONS (2)
  - DEPRESSION [None]
  - SUICIDE ATTEMPT [None]
